FAERS Safety Report 9667850 (Version 1)
Quarter: 2013Q4

REPORT INFORMATION
  Report Type: Report from Study
  Country: BR (occurrence: BR)
  Receive Date: 20131104
  Receipt Date: 20131104
  Transmission Date: 20140711
  Serious: Yes (Death, Other)
  Sender: FDA-Public Use
  Company Number: PHHY2013BR123212

PATIENT
  Age: 82 Year
  Sex: Female
  Weight: 66 kg

DRUGS (7)
  1. ONBREZ [Suspect]
     Indication: CHRONIC OBSTRUCTIVE PULMONARY DISEASE
     Dosage: 150 UG, QD
     Dates: start: 201209
  2. SPIRIVA [Concomitant]
     Indication: CHRONIC OBSTRUCTIVE PULMONARY DISEASE
     Dosage: 1 DF, QD
     Route: 048
  3. MAREVAN [Concomitant]
     Indication: CEREBROVASCULAR ACCIDENT
     Dosage: 1 DF, QD
     Route: 048
  4. LASIX [Concomitant]
     Dosage: 1 DF, QD
  5. CARVEDILOL [Concomitant]
     Indication: CARDIAC DISORDER
     Dosage: 2 DF, QD
     Route: 048
  6. EQUILID [Concomitant]
     Indication: DIZZINESS
     Dosage: 1 DF, QD
     Route: 048
  7. ALDACTONE [Concomitant]
     Indication: CARDIAC DISORDER
     Dosage: 1 DF, QD
     Route: 048

REACTIONS (9)
  - Ventricular fibrillation [Fatal]
  - Atrial fibrillation [Fatal]
  - Acute myocardial infarction [Fatal]
  - Cardiac failure congestive [Fatal]
  - Cerebrovascular accident [Fatal]
  - Heart valve incompetence [Not Recovered/Not Resolved]
  - Cardiac ventricular disorder [Not Recovered/Not Resolved]
  - Syncope [Recovered/Resolved]
  - Fatigue [Not Recovered/Not Resolved]
